FAERS Safety Report 11497423 (Version 3)
Quarter: 2015Q4

REPORT INFORMATION
  Report Type: Spontaneous
  Country: AU (occurrence: AU)
  Receive Date: 20150911
  Receipt Date: 20151211
  Transmission Date: 20160304
  Serious: Yes (Other)
  Sender: FDA-Public Use
  Company Number: AU-ABBVIE-15P-008-1461802-00

PATIENT
  Sex: Female

DRUGS (1)
  1. EPILIM [Suspect]
     Active Substance: VALPROATE SODIUM
     Indication: PRODUCT USED FOR UNKNOWN INDICATION
     Dosage: UNKNOWN FREQUENCY
     Route: 048

REACTIONS (2)
  - Condition aggravated [Unknown]
  - Seizure [Unknown]
